FAERS Safety Report 7797558-1 (Version None)
Quarter: 2011Q4

REPORT INFORMATION
  Report Type: 
  Country: None (occurrence: None)
  Receive Date: 20111004
  Receipt Date: 20111004
  Transmission Date: 20120403
  Serious: No
  Sender: FDA-Public Use
  Company Number: None

PATIENT
  Sex: Female

DRUGS (1)
  1. ENBREL [Suspect]
     Indication: RHEUMATOID ARTHRITIS
     Dosage: 40MG Q7D SQ
     Route: 058
     Dates: start: 20110517, end: 20110919

REACTIONS (2)
  - MOOD SWINGS [None]
  - FATIGUE [None]
